FAERS Safety Report 8854942 (Version 1)
Quarter: 2012Q4

REPORT INFORMATION
  Report Type: 
  Country: SE (occurrence: SE)
  Receive Date: 20121023
  Receipt Date: 20121023
  Transmission Date: 20130627
  Serious: Yes (Other)
  Sender: FDA-Public Use
  Company Number: SE-009507513-1210SWE006385

PATIENT
  Age: 11 Year
  Sex: Male

DRUGS (4)
  1. NOXAFIL [Suspect]
     Indication: LOWER RESPIRATORY TRACT INFECTION FUNGAL
     Dosage: 400 mg, bid
     Route: 048
     Dates: start: 2012, end: 2012
  2. AVASTIN (BEVACIZUMAB) [Concomitant]
     Indication: MEDULLOBLASTOMA
  3. CELECOXIB [Concomitant]
     Indication: MEDULLOBLASTOMA
  4. LIPANTHYL [Concomitant]
     Indication: MEDULLOBLASTOMA

REACTIONS (1)
  - Hearing impaired [Not Recovered/Not Resolved]
